FAERS Safety Report 7790756-2 (Version None)
Quarter: 2011Q3

REPORT INFORMATION
  Report Type: 
  Country: None (occurrence: None)
  Receive Date: 20110930
  Receipt Date: 20110920
  Transmission Date: 20111222
  Serious: Yes (Other)
  Sender: FDA-Public Use
  Company Number: CH-ABBOTT-11P-151-0859128-00

PATIENT
  Sex: Female

DRUGS (3)
  1. ZIDOVUDINE [Concomitant]
     Indication: HIV INFECTION
     Route: 048
  2. LAMIVUDINE [Concomitant]
     Indication: HIV INFECTION
     Route: 048
  3. KALETRA [Suspect]
     Indication: HIV INFECTION
     Route: 048

REACTIONS (1)
  - STILLBIRTH [None]
